FAERS Safety Report 8246999-7 (Version None)
Quarter: 2012Q1

REPORT INFORMATION
  Report Type: 
  Country: None (occurrence: None)
  Receive Date: 20120330
  Receipt Date: 20120330
  Transmission Date: 20120608
  Serious: Yes (Other)
  Sender: FDA-Public Use
  Company Number: None

PATIENT
  Age: 25 Year
  Sex: Female
  Weight: 155.58 kg

DRUGS (3)
  1. METHYLPREDNISOLONE [Suspect]
     Indication: ASTHMA
     Dosage: 21 TABLETS AS INDICATED
     Route: 048
     Dates: start: 20120308, end: 20120328
  2. METHYLPREDNISOLONE [Suspect]
     Indication: LOWER RESPIRATORY TRACT INFLAMMATION
     Dosage: 21 TABLETS AS INDICATED
     Route: 048
     Dates: start: 20120308, end: 20120328
  3. METHYLPREDNISOLONE [Concomitant]

REACTIONS (6)
  - DIZZINESS [None]
  - SOMNOLENCE [None]
  - HYPOPNOEA [None]
  - RESPIRATORY RATE DECREASED [None]
  - ASTHENIA [None]
  - IMPAIRED DRIVING ABILITY [None]
